FAERS Safety Report 7357177-8 (Version None)
Quarter: 2011Q1

REPORT INFORMATION
  Report Type: 
  Country: None (occurrence: None)
  Receive Date: 20110308
  Receipt Date: 20110223
  Transmission Date: 20110831
  Serious: Yes (Other)
  Sender: FDA-Public Use
  Company Number: 028142

PATIENT
  Sex: Male

DRUGS (2)
  1. KEPPRA [Suspect]
     Indication: EPILEPSY
  2. ANTINEOPLASTIC AGENTS (CYTOTOXIC DRUG) [Suspect]

REACTIONS (2)
  - BONE MARROW DISORDER [None]
  - THROMBOCYTOPENIA [None]
